FAERS Safety Report 18883842 (Version 1)
Quarter: 2021Q1

REPORT INFORMATION
  Report Type: Spontaneous
  Country: CN (occurrence: CN)
  Receive Date: 20210212
  Receipt Date: 20210212
  Transmission Date: 20210420
  Serious: Yes (Other)
  Sender: FDA-Public Use
  Company Number: CN-SGP-000122

PATIENT
  Age: 60 Year

DRUGS (2)
  1. METHYLPREDNISOLONE. [Suspect]
     Active Substance: METHYLPREDNISOLONE
     Indication: PEMPHIGOID
     Dosage: ONCE DAILY FOR 3 WEEKS
     Route: 048
  2. METHYLPREDNISOLONE. [Suspect]
     Active Substance: METHYLPREDNISOLONE
     Indication: PEMPHIGOID
     Dosage: ONCE DAILY FOR 2 WEEKS
     Route: 048

REACTIONS (2)
  - Kaposi^s sarcoma [Unknown]
  - Product use in unapproved indication [Unknown]
